FAERS Safety Report 25221023 (Version 1)
Quarter: 2025Q2

REPORT INFORMATION
  Report Type: Spontaneous
  Country: CN (occurrence: CN)
  Receive Date: 20250421
  Receipt Date: 20250421
  Transmission Date: 20250717
  Serious: Yes (Hospitalization)
  Sender: JOHNSON AND JOHNSON
  Company Number: CN-BAYER-2025A053153

PATIENT
  Age: 76 Year
  Sex: Male
  Weight: 70 kg

DRUGS (1)
  1. XARELTO [Suspect]
     Active Substance: RIVAROXABAN
     Indication: Atrial fibrillation
     Dosage: 20 MG, QD
     Route: 048
     Dates: start: 20240525, end: 20250202

REACTIONS (11)
  - Gastrointestinal haemorrhage [Recovering/Resolving]
  - Asthenia [Unknown]
  - Dizziness [Unknown]
  - Melaena [Recovered/Resolved]
  - Prothrombin level decreased [Unknown]
  - Haemoglobin decreased [Recovering/Resolving]
  - Platelet count increased [Unknown]
  - Lymphocyte percentage decreased [Unknown]
  - Lymphocyte count decreased [Unknown]
  - Monocyte count increased [Unknown]
  - Neutrophil percentage increased [Unknown]

NARRATIVE: CASE EVENT DATE: 20250126
